FAERS Safety Report 16764429 (Version 2)
Quarter: 2019Q4

REPORT INFORMATION
  Report Type: Spontaneous
  Country: FR (occurrence: FR)
  Receive Date: 20190902
  Receipt Date: 20191219
  Transmission Date: 20200122
  Serious: Yes (Life-Threatening, Hospitalization, Other)
  Sender: FDA-Public Use
  Company Number: FR-009507513-2005-10-0179

PATIENT
  Age: 14 Year
  Sex: Female
  Weight: 74 kg

DRUGS (17)
  1. NOXAFIL [Suspect]
     Active Substance: POSACONAZOLE
     Dosage: 200 MG, UNK
     Route: 048
     Dates: start: 20050930, end: 20050930
  2. FORTUM [Concomitant]
     Active Substance: CEFTAZIDIME
     Indication: PYREXIA
  3. CASPOFUNGIN ACETATE. [Concomitant]
     Active Substance: CASPOFUNGIN ACETATE
     Indication: FUNGAL INFECTION
     Dosage: DUR. OF TREATMENT TO EVENT: 9 DAY
     Route: 042
     Dates: start: 20050921
  4. MYCOSTATINE [Concomitant]
     Active Substance: NYSTATIN
     Dosage: DUR. OF TREATMENT TO EVENT: 13 DAY
     Route: 048
     Dates: start: 20050917, end: 20050929
  5. MOPRAL (OMEPRAZOLE) [Suspect]
     Active Substance: OMEPRAZOLE SODIUM
     Indication: VOMITING
     Dosage: UNK
     Route: 048
     Dates: start: 20050917
  6. ATARAX [Concomitant]
     Active Substance: HYDROXYZINE HYDROCHLORIDE
     Indication: NERVOUSNESS
     Dosage: DOSE: 30 MG TID DURATION: CONTINUING
     Route: 042
     Dates: start: 200508
  7. SILOMAT [Concomitant]
     Dosage: DOSE: UNK DURATION: CONTINUING
  8. VORICONAZOLE. [Suspect]
     Active Substance: VORICONAZOLE
     Indication: ASPERGILLUS INFECTION
     Dosage: 300 MG TWICE A DAY
     Route: 042
     Dates: start: 20050915, end: 20050929
  9. AMBISOME [Concomitant]
     Active Substance: AMPHOTERICIN B
     Indication: ASPERGILLUS INFECTION
     Dosage: DUR. OF TREATMENT TO EVENT: 19 DAY
     Route: 042
     Dates: start: 20050911, end: 20050926
  10. VANCOMYCIN [Concomitant]
     Active Substance: VANCOMYCIN
     Indication: FEBRILE NEUTROPENIA
     Dosage: UNK UNK, UNKNOWN
     Route: 042
  11. ONDANSETRON [Concomitant]
     Active Substance: ONDANSETRON
     Indication: NAUSEA
     Dosage: 8 MG, BID
     Route: 065
     Dates: start: 200508
  12. TARGOCID [Concomitant]
     Active Substance: TEICOPLANIN
     Indication: APLASIA
     Dosage: DOSE: 900 MG QD DURATION: CONTINUING
     Route: 042
     Dates: start: 200509
  13. PRIMPERAN [Concomitant]
     Active Substance: METOCLOPRAMIDE HYDROCHLORIDE
     Indication: NAUSEA
     Dosage: DOSE: 1 AMP TID DURATION: CONTINUING
     Route: 042
     Dates: start: 200508
  14. LEUPROLIDE ACETATE. [Concomitant]
     Active Substance: LEUPROLIDE ACETATE
     Dosage: DOSE: EVERY 3 MONTH DURATION: UNKNOWN
     Route: 042
     Dates: start: 200508
  15. PIPERACILLIN AND TAZOBACTAM [Concomitant]
     Active Substance: PIPERACILLIN SODIUM\TAZOBACTAM SODIUM
     Indication: FEBRILE NEUTROPENIA
     Dosage: UNK UNK, UNKNOWN
     Route: 042
  16. MOPRAL (OMEPRAZOLE) [Suspect]
     Active Substance: OMEPRAZOLE SODIUM
     Indication: NAUSEA
  17. POLARAMINE TABLETS [Concomitant]
     Indication: PRURITUS
     Dosage: DOSE: 1 AMP TID DURATION: CONTINUING
     Route: 042
     Dates: start: 200508

REACTIONS (8)
  - Hypomagnesaemia [Unknown]
  - Drug interaction [Recovered/Resolved]
  - Thrombocytopenia [Unknown]
  - Ventricular fibrillation [Recovered/Resolved]
  - Cardiac arrest [Recovered/Resolved]
  - Electrocardiogram QT prolonged [Not Recovered/Not Resolved]
  - Torsade de pointes [Recovered/Resolved]
  - Renal failure [Unknown]

NARRATIVE: CASE EVENT DATE: 20050930
